FAERS Safety Report 9868291 (Version 1)
Quarter: 2014Q1

REPORT INFORMATION
  Report Type: Spontaneous
  Country: US (occurrence: US)
  Receive Date: 20140204
  Receipt Date: 20140204
  Transmission Date: 20141002
  Serious: Yes (Other)
  Sender: FDA-Public Use
  Company Number: US-AMGEN-USASP2014006516

PATIENT
  Age: 64 Year
  Sex: Female

DRUGS (10)
  1. PROLIA [Suspect]
     Indication: OSTEOPOROSIS POSTMENOPAUSAL
     Dosage: UNK
     Route: 065
     Dates: start: 2010
  2. METHOTREXATE [Concomitant]
     Indication: RHEUMATOID ARTHRITIS
  3. SIMPONI [Concomitant]
     Indication: RHEUMATOID ARTHRITIS
  4. CELEBREX [Concomitant]
     Indication: RHEUMATOID ARTHRITIS
  5. MONTELUKAST [Concomitant]
     Dosage: AT NIGHT
  6. CLARITIN                           /00413701/ [Concomitant]
  7. ASTELIN                            /00085801/ [Concomitant]
  8. FOLIC ACID [Concomitant]
  9. VITAMIN D                          /00107901/ [Concomitant]
     Dosage: 10000 MG, Q3WK
  10. CALCIUM [Concomitant]

REACTIONS (8)
  - Asthma [Recovered/Resolved]
  - Body height decreased [Unknown]
  - Adverse event [Unknown]
  - Drug effect delayed [Unknown]
  - Body temperature increased [Unknown]
  - Gastrooesophageal reflux disease [Unknown]
  - Back pain [Unknown]
  - Nerve compression [Unknown]
